FAERS Safety Report 14095496 (Version 1)
Quarter: 2017Q4

REPORT INFORMATION
  Report Type: Spontaneous
  Country: US (occurrence: US)
  Receive Date: 20171016
  Receipt Date: 20171016
  Transmission Date: 20180321
  Serious: No
  Sender: FDA-Public Use
  Company Number: US-NOVOPROD-554164

PATIENT
  Age: 32 Year
  Sex: Female

DRUGS (1)
  1. TRESIBA FLEXTOUCH U200 [Suspect]
     Active Substance: INSULIN DEGLUDEC
     Indication: TYPE 1 DIABETES MELLITUS
     Dosage: 15 U, QD
     Route: 058
     Dates: start: 2016

REACTIONS (3)
  - Product use issue [Unknown]
  - Blood glucose increased [Not Recovered/Not Resolved]
  - Device malfunction [Recovered/Resolved]

NARRATIVE: CASE EVENT DATE: 20170706
